FAERS Safety Report 4693083-5 (Version None)
Quarter: 2005Q2

REPORT INFORMATION
  Report Type: 
  Country: None (occurrence: None)
  Receive Date: 20050617
  Receipt Date: 20050608
  Transmission Date: 20051028
  Serious: Yes (Hospitalization, Congenital Anomaly)
  Sender: FDA-Public Use
  Company Number: PHBS2005JP08387

PATIENT
  Sex: Female

DRUGS (2)
  1. TEGRETOL [Suspect]
     Route: 064
  2. PHENOBAL [Suspect]

REACTIONS (7)
  - AUTISM [None]
  - COMPLEX PARTIAL SEIZURES [None]
  - CONVULSION [None]
  - DRUG EXPOSURE DURING PREGNANCY [None]
  - NEUROBLASTOMA [None]
  - PARTIAL ADRENALECTOMY [None]
  - VANILLYL MANDELIC ACID URINE INCREASED [None]
